FAERS Safety Report 13022840 (Version 2)
Quarter: 2017Q2

REPORT INFORMATION
  Report Type: Spontaneous
  Country: AT (occurrence: AT)
  Receive Date: 20161213
  Receipt Date: 20170630
  Transmission Date: 20170830
  Serious: Yes (Hospitalization, Other)
  Sender: FDA-Public Use
  Company Number: AT-SA-2016SA222910

PATIENT
  Age: 25 Year
  Sex: Male

DRUGS (2)
  1. LEMTRADA [Suspect]
     Active Substance: ALEMTUZUMAB
     Indication: RELAPSING-REMITTING MULTIPLE SCLEROSIS
     Route: 041
     Dates: start: 20150707, end: 20150712
  2. METASOL [Concomitant]
     Active Substance: BENZOPHENONE\HYDROQUINONE

REACTIONS (12)
  - Fine motor skill dysfunction [Recovered/Resolved]
  - Mobility decreased [Recovered/Resolved]
  - Leukopenia [Unknown]
  - Febrile infection [Unknown]
  - Liver function test abnormal [Unknown]
  - Constipation [Recovered/Resolved]
  - Sensory disturbance [Unknown]
  - Ultrasound scan abnormal [Unknown]
  - Oral herpes [Unknown]
  - Headache [Recovered/Resolved]
  - Hypoaesthesia [Recovered/Resolved]
  - Lymphopenia [Recovered/Resolved]

NARRATIVE: CASE EVENT DATE: 20150707
